FAERS Safety Report 7150812-9 (Version None)
Quarter: 2010Q4

REPORT INFORMATION
  Report Type: 
  Country: None (occurrence: None)
  Receive Date: 20101210
  Receipt Date: 20101202
  Transmission Date: 20110411
  Serious: Yes (Death, Other)
  Sender: FDA-Public Use
  Company Number: JP-ROCHE-702173

PATIENT
  Sex: Male
  Weight: 61 kg

DRUGS (11)
  1. AVASTIN [Suspect]
     Indication: COLON CANCER METASTATIC
     Dosage: ROUTE:INTRAVENOUS DRIP
     Route: 042
     Dates: start: 20090611, end: 20090611
  2. AVASTIN [Suspect]
     Route: 042
     Dates: start: 20090707, end: 20090707
  3. ELPLAT [Suspect]
     Indication: COLON CANCER METASTATIC
     Dosage: ROUTE:INTRAVENOUS DRIP
     Route: 042
     Dates: start: 20090611, end: 20090611
  4. ELPLAT [Suspect]
     Route: 042
     Dates: start: 20090707, end: 20090707
  5. FLUOROURACIL [Concomitant]
     Dosage: ROUTE:INTRAVENOUS BOLUS
     Route: 042
     Dates: start: 20090611, end: 20090611
  6. FLUOROURACIL [Concomitant]
     Dosage: ROUTE:INTRAVENOUS DRIP
     Route: 042
     Dates: start: 20090611, end: 20090613
  7. LEVOFOLINATE [Concomitant]
     Dosage: ROUTE:INTRAVENOUS DRIP
     Route: 042
     Dates: start: 20090611, end: 20090611
  8. GRANISETRON HCL [Concomitant]
     Dosage: ROUTE:INTRAVENOUS (NOT OTHERWISE SPECIFIED)
     Route: 042
     Dates: start: 20090611, end: 20090611
  9. GRANISETRON HCL [Concomitant]
     Route: 042
     Dates: start: 20090707, end: 20090707
  10. DECADRON [Concomitant]
     Dosage: DRUG REPORTED AS DECADRON (DEXAMETHASONE SODIUM PHOSPHATE)
     Route: 042
     Dates: start: 20090611, end: 20090611
  11. DECADRON [Concomitant]
     Route: 042
     Dates: start: 20090707, end: 20090707

REACTIONS (8)
  - ACUTE RESPIRATORY FAILURE [None]
  - ANAPHYLACTIC SHOCK [None]
  - CARDIO-RESPIRATORY ARREST [None]
  - HYPOXIA [None]
  - JAUNDICE [None]
  - PNEUMONIA [None]
  - POSTRESUSCITATION ENCEPHALOPATHY [None]
  - SHOCK [None]
